FAERS Safety Report 5403597-8 (Version None)
Quarter: 2007Q3

REPORT INFORMATION
  Report Type: 
  Country: None (occurrence: None)
  Receive Date: 20070802
  Receipt Date: 20070724
  Transmission Date: 20080115
  Serious: Yes (Other)
  Sender: FDA-Public Use
  Company Number: PHFR2007GB02290

PATIENT
  Sex: Male

DRUGS (4)
  1. CARBAMAZEPINE [Suspect]
     Indication: AGGRESSION
     Dosage: 1 DF, QD
     Route: 048
  2. DULOXETINE HYDROCHLORIDE [Suspect]
     Dosage: 60 MG, QD
     Route: 065
  3. EFFEXOR [Suspect]
     Indication: DEPRESSION
     Dosage: 150 MG, QD
     Route: 048
  4. EFFEXOR [Suspect]
     Dosage: 225 MG, QD
     Route: 048

REACTIONS (2)
  - DRUG INTERACTION [None]
  - HOMICIDE [None]
